FAERS Safety Report 10281660 (Version 2)
Quarter: 2014Q3

REPORT INFORMATION
  Report Type: Spontaneous
  Country: US (occurrence: US)
  Receive Date: 20140707
  Receipt Date: 20140814
  Transmission Date: 20150326
  Serious: Yes (Other)
  Sender: FDA-Public Use
  Company Number: US-AMGEN INC.-USASP2014050386

PATIENT
  Age: 49 Year
  Sex: Female
  Weight: 81.63 kg

DRUGS (8)
  1. VENLAFAXINE [Concomitant]
     Active Substance: VENLAFAXINE HYDROCHLORIDE
     Dosage: UNK
  2. HCTZ [Concomitant]
     Active Substance: HYDROCHLOROTHIAZIDE
     Dosage: UNK
  3. CITRACAL                           /00751520/ [Concomitant]
     Dosage: UNK
  4. CENTRUM FOR WOMEN [Concomitant]
     Dosage: UNK
  5. ENBREL [Suspect]
     Active Substance: ETANERCEPT
     Indication: RHEUMATOID ARTHRITIS
     Dosage: 50 MG, QWK
     Route: 058
     Dates: start: 20131120, end: 201406
  6. VITAMIN D3 [Concomitant]
     Active Substance: CHOLECALCIFEROL
     Dosage: UNK
  7. VIVELLE DOT [Concomitant]
     Active Substance: ESTRADIOL
     Dosage: UNK
  8. TOPROL XL [Concomitant]
     Active Substance: METOPROLOL SUCCINATE
     Dosage: UNK

REACTIONS (9)
  - Balance disorder [Unknown]
  - Diplopia [Not Recovered/Not Resolved]
  - Nausea [Unknown]
  - Central nervous system lesion [Unknown]
  - Demyelination [Unknown]
  - Vertigo [Not Recovered/Not Resolved]
  - Central nervous system inflammation [Unknown]
  - Dizziness [Unknown]
  - Vision blurred [Unknown]

NARRATIVE: CASE EVENT DATE: 2014
